FAERS Safety Report 19395087 (Version 1)
Quarter: 2021Q2

REPORT INFORMATION
  Report Type: Spontaneous
  Country: CA (occurrence: CA)
  Receive Date: 20210609
  Receipt Date: 20210609
  Transmission Date: 20210717
  Serious: Yes (Death)
  Sender: FDA-Public Use
  Company Number: CA-PFIZER INC-2021469519

PATIENT
  Age: 64 Year
  Sex: Male

DRUGS (1)
  1. SUTENT [Suspect]
     Active Substance: SUNITINIB MALATE
     Indication: METASTATIC RENAL CELL CARCINOMA
     Dosage: 50 MG, CYCLIC: DAILY (FOR 28 DAYS, FOLLOWED BY 14 DAYS OFF)
     Route: 048
     Dates: start: 20210427

REACTIONS (1)
  - Death [Fatal]

NARRATIVE: CASE EVENT DATE: 202105
